FAERS Safety Report 22087205 (Version 18)
Quarter: 2025Q3

REPORT INFORMATION
  Report Type: Spontaneous
  Country: US (occurrence: US)
  Receive Date: 20230313
  Receipt Date: 20250701
  Transmission Date: 20251020
  Serious: Yes (Hospitalization, Other)
  Sender: ROCHE
  Company Number: US-ROCHE-3304416

PATIENT
  Age: 6 Year
  Sex: Male
  Weight: 45.36 kg

DRUGS (9)
  1. HEMLIBRA [Suspect]
     Active Substance: EMICIZUMAB-KXWH
     Indication: Factor VIII deficiency
     Dosage: FORM STRENGTH : 60MG/0.4ML
     Route: 058
     Dates: start: 20221208
  2. HEMLIBRA [Suspect]
     Active Substance: EMICIZUMAB-KXWH
     Route: 058
     Dates: start: 202303
  3. HEMLIBRA [Suspect]
     Active Substance: EMICIZUMAB-KXWH
     Dosage: STRENGTH- 60 MG/0.4 ML
     Route: 058
     Dates: start: 202303
  4. HEMLIBRA [Suspect]
     Active Substance: EMICIZUMAB-KXWH
     Dosage: 0.35 ML?STRENGTH- 60 MG/0.4 ML
     Route: 058
     Dates: start: 202303
  5. HEMLIBRA [Suspect]
     Active Substance: EMICIZUMAB-KXWH
     Dosage: STRENGTH: 105MG/0.7ML
     Route: 058
     Dates: start: 202303
  6. HEMLIBRA [Suspect]
     Active Substance: EMICIZUMAB-KXWH
     Dosage: STRENGTH: 105MG/0.7ML
     Route: 058
     Dates: start: 202303
  7. HEMLIBRA [Suspect]
     Active Substance: EMICIZUMAB-KXWH
     Dosage: STRENGTH: 150MG/ML
     Route: 058
     Dates: start: 202303
  8. HEMLIBRA [Suspect]
     Active Substance: EMICIZUMAB-KXWH
     Dosage: STRENGTH: 150MG/ML
     Route: 058
     Dates: start: 202303
  9. AMINOCAPROIC ACID [Concomitant]
     Active Substance: AMINOCAPROIC ACID
     Route: 048

REACTIONS (13)
  - Fall [Unknown]
  - Haemarthrosis [Recovered/Resolved]
  - Haemorrhage [Recovered/Resolved]
  - Skin laceration [Unknown]
  - Joint injury [Unknown]
  - Arthralgia [Unknown]
  - Gingival bleeding [Unknown]
  - Pain in extremity [Unknown]
  - Head injury [Unknown]
  - Eyelid injury [Unknown]
  - Limb injury [Unknown]
  - Joint injury [Unknown]
  - Haemorrhage [Recovered/Resolved]

NARRATIVE: CASE EVENT DATE: 20221208
